FAERS Safety Report 23499280 (Version 1)
Quarter: 2024Q1

REPORT INFORMATION
  Report Type: Spontaneous
  Country: US (occurrence: US)
  Receive Date: 20240208
  Receipt Date: 20240208
  Transmission Date: 20240410
  Serious: Yes (Hospitalization)
  Sender: FDA-Public Use
  Company Number: US-AVET LIFESCIENCES LTD-2024-AVET-000026

PATIENT
  Age: 34 Year
  Sex: Female

DRUGS (11)
  1. LABETALOL [Suspect]
     Active Substance: LABETALOL\LABETALOL HYDROCHLORIDE
     Indication: Pre-eclampsia
     Dosage: 100 MILLIGRAM, BID
     Route: 048
  2. LABETALOL [Suspect]
     Active Substance: LABETALOL\LABETALOL HYDROCHLORIDE
     Dosage: 200 MILLIGRAM, BID
     Route: 048
  3. LABETALOL [Suspect]
     Active Substance: LABETALOL\LABETALOL HYDROCHLORIDE
     Dosage: 400 MILLIGRAM, BID
     Route: 048
  4. LABETALOL [Suspect]
     Active Substance: LABETALOL\LABETALOL HYDROCHLORIDE
     Dosage: 800 MILLIGRAM
     Route: 048
  5. LABETALOL [Suspect]
     Active Substance: LABETALOL\LABETALOL HYDROCHLORIDE
     Dosage: 800 MILLIGRAM, BID
     Route: 048
  6. LABETALOL [Suspect]
     Active Substance: LABETALOL\LABETALOL HYDROCHLORIDE
     Dosage: 20 MILLIGRAM
     Route: 042
  7. LABETALOL [Suspect]
     Active Substance: LABETALOL\LABETALOL HYDROCHLORIDE
     Dosage: 40 MILLIGRAM
     Route: 042
  8. NITROFURANTOIN [Concomitant]
     Active Substance: NITROFURANTOIN
     Dosage: DAILY SUPPRESSION THERAPY FOR THE REST OF HER PREGNANCY
     Route: 042
  9. HYDRALAZINE [Concomitant]
     Active Substance: HYDRALAZINE HYDROCHLORIDE
     Dosage: 25 MILLIGRAM AT 1 TIME
     Route: 042
  10. MAGNESIUM SULFATE [Concomitant]
     Active Substance: MAGNESIUM SULFATE\MAGNESIUM SULFATE HEPTAHYDRATE
     Dosage: 4 GRAM, LOADING DOSE
     Route: 042
  11. MAGNESIUM SULFATE [Concomitant]
     Active Substance: MAGNESIUM SULFATE\MAGNESIUM SULFATE HEPTAHYDRATE
     Dosage: 2 GRAM PER HOUR INFUSION
     Route: 042

REACTIONS (2)
  - Drug-induced liver injury [Recovered/Resolved]
  - Exposure during pregnancy [Unknown]
